FAERS Safety Report 19804387 (Version 2)
Quarter: 2022Q3

REPORT INFORMATION
  Report Type: Spontaneous
  Country: US (occurrence: None)
  Receive Date: 20210908
  Receipt Date: 20220907
  Transmission Date: 20221026
  Serious: No
  Sender: FDA-Public Use
  Company Number: US-FARMAPROD-202106-0843

PATIENT
  Age: 98 Year
  Sex: Male

DRUGS (1)
  1. OXERVATE [Suspect]
     Active Substance: CENEGERMIN-BKBJ
     Indication: Neurotrophic keratopathy
     Route: 047
     Dates: start: 20210528

REACTIONS (4)
  - Ocular hyperaemia [Unknown]
  - Eye swelling [Unknown]
  - Blepharitis [Unknown]
  - Drug intolerance [Unknown]

NARRATIVE: CASE EVENT DATE: 20210529
